FAERS Safety Report 8935561 (Version 2)
Quarter: 2013Q1

REPORT INFORMATION
  Report Type: Spontaneous
  Country: FR (occurrence: FR)
  Receive Date: 20121130
  Receipt Date: 20130226
  Transmission Date: 20140127
  Serious: Yes (Other)
  Sender: FDA-Public Use
  Company Number: PHHY2012FR073227

PATIENT
  Age: 44 Year
  Sex: Female

DRUGS (8)
  1. EXTAVIA [Suspect]
     Indication: MULTIPLE SCLEROSIS
     Dosage: 1 ML, ONE INJECTION EVERY OTHER DAY
     Route: 058
     Dates: start: 20120716
  2. EXTAVIA [Suspect]
     Dosage: UNK UKN, UNK
     Route: 058
     Dates: start: 20120823
  3. LYRICA [Concomitant]
  4. INEXIUM//ESOMEPRAZOLE MAGNESIUM [Concomitant]
  5. DAFALGAN [Concomitant]
  6. ADVEL [Concomitant]
  7. MIOREL [Concomitant]
  8. RIVOTRIL [Concomitant]

REACTIONS (19)
  - Loss of consciousness [Not Recovered/Not Resolved]
  - Asthma [Unknown]
  - Multiple sclerosis relapse [Not Recovered/Not Resolved]
  - Paralysis [Not Recovered/Not Resolved]
  - Muscle atrophy [Not Recovered/Not Resolved]
  - Arthralgia [Not Recovered/Not Resolved]
  - Pain in extremity [Not Recovered/Not Resolved]
  - Formication [Not Recovered/Not Resolved]
  - Back pain [Not Recovered/Not Resolved]
  - Pain [Not Recovered/Not Resolved]
  - Headache [Not Recovered/Not Resolved]
  - Sensory disturbance [Unknown]
  - Skin discolouration [Unknown]
  - Osteoporosis [Unknown]
  - Fatigue [Not Recovered/Not Resolved]
  - Dyspnoea [Not Recovered/Not Resolved]
  - Respiratory disorder [Not Recovered/Not Resolved]
  - Pyrexia [Not Recovered/Not Resolved]
  - Anxiety [Unknown]
